FAERS Safety Report 5187570-3 (Version None)
Quarter: 2006Q4

REPORT INFORMATION
  Report Type: 
  Country: None (occurrence: None)
  Receive Date: 20061220
  Receipt Date: 20051221
  Transmission Date: 20070319
  Serious: No
  Sender: FDA-Public Use
  Company Number: US-AMGEN-US162453

PATIENT
  Sex: Female
  Weight: 61.3 kg

DRUGS (6)
  1. ENBREL [Suspect]
     Indication: PSORIATIC ARTHROPATHY
     Route: 058
     Dates: start: 20050921
  2. ENBREL [Suspect]
     Indication: PSORIASIS
  3. INFLUENZA VACCINE [Suspect]
     Dates: start: 20051101, end: 20051101
  4. RISPERDAL [Concomitant]
  5. CELEXA [Concomitant]
  6. TRAZODONE HCL [Concomitant]

REACTIONS (2)
  - CONDITION AGGRAVATED [None]
  - PSORIASIS [None]
